FAERS Safety Report 25543614 (Version 1)
Quarter: 2025Q3

REPORT INFORMATION
  Report Type: Spontaneous
  Country: EU (occurrence: EU)
  Receive Date: 20250711
  Receipt Date: 20250711
  Transmission Date: 20251020
  Serious: Yes (Other)
  Sender: RANBAXY
  Company Number: EU-SUN PHARMACEUTICAL INDUSTRIES LTD-2025RR-515770

PATIENT
  Age: 32 Year
  Sex: Female

DRUGS (3)
  1. SILDENAFIL [Suspect]
     Active Substance: SILDENAFIL
     Indication: Immunosuppressant drug therapy
     Route: 065
  2. NIFEDIPINE [Suspect]
     Active Substance: NIFEDIPINE
     Indication: Immunosuppressant drug therapy
     Route: 065
  3. NINTEDANIB [Suspect]
     Active Substance: NINTEDANIB
     Indication: Immunosuppressant drug therapy
     Route: 065

REACTIONS (1)
  - Disease progression [Recovered/Resolved]
